FAERS Safety Report 10927831 (Version 1)
Quarter: 2015Q1

REPORT INFORMATION
  Report Type: Spontaneous
  Country: JP (occurrence: JP)
  Receive Date: 20150319
  Receipt Date: 20150319
  Transmission Date: 20150721
  Serious: Yes (Death, Other)
  Sender: FDA-Public Use
  Company Number: PHHY2015JP029557

PATIENT
  Age: 31 Year
  Sex: Female
  Weight: 108 kg

DRUGS (9)
  1. PREDNISOLONE. [Suspect]
     Active Substance: PREDNISOLONE
     Indication: ASTHMA
     Route: 065
  2. UNIPHYL [Concomitant]
     Active Substance: THEOPHYLLINE ANHYDROUS
     Indication: ASTHMA
     Route: 065
  3. ALESION [Concomitant]
     Active Substance: EPINASTINE HYDROCHLORIDE
     Indication: ASTHMA
     Route: 065
  4. ZANTAC [Concomitant]
     Active Substance: RANITIDINE HYDROCHLORIDE
     Indication: ASTHMA
     Route: 065
  5. PULMICORT TURBUHALER [Suspect]
     Active Substance: BUDESONIDE
     Indication: ASTHMA
     Route: 065
  6. MUCOSTA [Concomitant]
     Active Substance: REBAMIPIDE
     Indication: ASTHMA
     Route: 065
  7. MEPTIN AIR [Concomitant]
     Active Substance: PROCATEROL HYDROCHLORIDE
     Indication: ASTHMA
     Route: 065
  8. SEREVENT [Concomitant]
     Active Substance: SALMETEROL XINAFOATE
     Indication: ASTHMA
     Route: 065
  9. ACCOLATE [Concomitant]
     Active Substance: ZAFIRLUKAST
     Indication: ASTHMA
     Route: 065

REACTIONS (3)
  - Cardio-respiratory arrest [Unknown]
  - Aortic aneurysm rupture [Fatal]
  - Asthma [Unknown]
